FAERS Safety Report 9101906 (Version 1)
Quarter: 2013Q1

REPORT INFORMATION
  Report Type: Spontaneous
  Country: US (occurrence: None)
  Receive Date: 20130220
  Receipt Date: 20130220
  Transmission Date: 20140127
  Serious: No
  Sender: FDA-Public Use
  Company Number: None

PATIENT
  Sex: 0

DRUGS (2)
  1. SODIUM BICARBONATE [Suspect]
     Dosage: INJECTABLE  INTRAVENOUS USE  1 MEQ/ML  LUER-LOCK PREFILLED?50 MEQ PER 50 ML  0548-3352-00
     Route: 042
  2. MORPHINE SULFATE [Suspect]
     Dosage: INJECTABLE  SLOW INTRAVENOUS USE  1 MG/ML?30 MG PER ML  0548-1911-00
     Route: 042

REACTIONS (2)
  - Medication error [None]
  - Circumstance or information capable of leading to medication error [None]
